FAERS Safety Report 7791985-4 (Version None)
Quarter: 2011Q4

REPORT INFORMATION
  Report Type: 
  Country: None (occurrence: None)
  Receive Date: 20111003
  Receipt Date: 20110921
  Transmission Date: 20120403
  Serious: Yes (Hospitalization, Other)
  Sender: FDA-Public Use
  Company Number: US-ELI_LILLY_AND_COMPANY-US201109006744

PATIENT
  Sex: Male

DRUGS (2)
  1. TAXOTERE [Concomitant]
     Indication: NON-SMALL CELL LUNG CANCER
     Dosage: UNK
     Dates: start: 20110301, end: 20110401
  2. GEMCITABINE HYDROCHLORIDE [Suspect]
     Dosage: UNK
     Dates: start: 20101201, end: 20110101

REACTIONS (7)
  - THROMBOSIS [None]
  - COUGH [None]
  - NEOPLASM PROGRESSION [None]
  - PULMONARY CONGESTION [None]
  - MALAISE [None]
  - DYSPNOEA [None]
  - WHEEZING [None]
